FAERS Safety Report 9742227 (Version 2)
Quarter: 2013Q4

REPORT INFORMATION
  Report Type: Report from Study
  Country: KR (occurrence: KR)
  Receive Date: 20131210
  Receipt Date: 20131210
  Transmission Date: 20140711
  Serious: Yes (Hospitalization)
  Sender: FDA-Public Use
  Company Number: KR-ASTELLAS-2013JP005054

PATIENT
  Age: 27 Year
  Sex: Male

DRUGS (11)
  1. TACROLIMUS MR4 CAPSULES [Suspect]
     Indication: IMMUNOSUPPRESSANT DRUG THERAPY
     Dosage: 4 MG, UNKNOWN/D
     Route: 048
     Dates: start: 20130316
  2. TACROLIMUS MR4 CAPSULES [Suspect]
     Dosage: 3 MG, UNKNOWN/D
     Route: 048
     Dates: start: 20130314, end: 201303
  3. MYREPT [Suspect]
     Indication: IMMUNOSUPPRESSANT DRUG THERAPY
     Dosage: 500 MG, UNKNOWN/D
     Route: 048
     Dates: start: 20130314, end: 20130412
  4. MYREPT [Suspect]
     Dosage: 500 MG, UNKNOWN/D
     Route: 048
     Dates: start: 20130417
  5. ALMAX [Concomitant]
     Dosage: 15 ML, BID
     Route: 048
  6. NYSTATIN [Concomitant]
     Dosage: 20 ML, BID
     Route: 048
  7. SEPTRIN [Concomitant]
     Dosage: 1 DF, BID
     Route: 048
  8. DILATREND [Concomitant]
     Dosage: 25 MG, BID
     Route: 048
  9. CARDURA XL [Concomitant]
     Dosage: 8 MG, BID
     Route: 048
  10. SYSCOR [Concomitant]
     Dosage: 10 MG, BID
     Route: 048
  11. OLDECA [Concomitant]
     Dosage: 10 MG, BID
     Route: 048

REACTIONS (3)
  - Drug ineffective [Unknown]
  - Transplant rejection [Recovered/Resolved]
  - Renal tubular disorder [Recovered/Resolved]
